FAERS Safety Report 7250359-5 (Version None)
Quarter: 2011Q1

REPORT INFORMATION
  Report Type: 
  Country: None (occurrence: None)
  Receive Date: 20110128
  Receipt Date: 20091204
  Transmission Date: 20110831
  Serious: No
  Sender: FDA-Public Use
  Company Number: A0833617A

PATIENT
  Age: 43 Year
  Sex: Male

DRUGS (2)
  1. COMBIVIR [Suspect]
     Indication: PROPHYLAXIS
     Dosage: 1TAB TWICE PER DAY
     Route: 048
     Dates: start: 20091116
  2. PEPTO BISMOL [Concomitant]

REACTIONS (6)
  - ABDOMINAL DISCOMFORT [None]
  - NAUSEA [None]
  - ARTHRALGIA [None]
  - MYALGIA [None]
  - DEPRESSION [None]
  - FATIGUE [None]
